FAERS Safety Report 6832551 (Version 2)
Quarter: 2013Q1

REPORT INFORMATION
  Report Type: Spontaneous
  Country: DE (occurrence: None)
  Receive Date: 20081121
  Receipt Date: 20130305
  Transmission Date: 20140127
  Serious: Yes (Hospitalization)
  Sender: FDA-Public Use
  Company Number: 2008002915

PATIENT
  Age: 77 Year
  Sex: Female

DRUGS (1)
  1. TARCEVA [Suspect]
     Indication: NON-SMALL CELL LUNG CANCER
     Dosage: UID/QD
     Route: 048
     Dates: start: 20071017, end: 20080519

REACTIONS (4)
  - Fall [None]
  - Spinal fracture [None]
  - Kyphosis [None]
  - Compression fracture [None]
